FAERS Safety Report 17041619 (Version 1)
Quarter: 2019Q4

REPORT INFORMATION
  Report Type: Spontaneous
  Country: JP (occurrence: JP)
  Receive Date: 20191118
  Receipt Date: 20191118
  Transmission Date: 20200122
  Serious: Yes (Other)
  Sender: FDA-Public Use
  Company Number: JP-009507513-1911JPN001160J

PATIENT
  Age: 48 Year
  Sex: Female

DRUGS (8)
  1. TRIAZOLAM. [Concomitant]
     Active Substance: TRIAZOLAM
     Dosage: UNK
     Route: 065
     Dates: start: 201408
  2. HOCHUEKKITO [Concomitant]
     Active Substance: HERBALS
     Dosage: UNK
     Route: 065
     Dates: start: 201906, end: 201909
  3. MIANSERIN HYDROCHLORIDE [Concomitant]
     Active Substance: MIANSERIN HYDROCHLORIDE
     Dosage: UNK
     Route: 065
     Dates: start: 201606, end: 201908
  4. CALCIUM COMPOUNDS AND PREPARATIONS [Concomitant]
     Active Substance: CALCIUM
     Dosage: UNK
     Route: 065
  5. BELSOMRA [Suspect]
     Active Substance: SUVOREXANT
     Indication: INSOMNIA
     Dosage: UNK
     Route: 048
     Dates: start: 201601
  6. ESCITALOPRAM OXALATE. [Concomitant]
     Active Substance: ESCITALOPRAM OXALATE
     Dosage: UNK
     Route: 065
     Dates: start: 201803
  7. MIRTAZAPINE. [Concomitant]
     Active Substance: MIRTAZAPINE
     Dosage: UNK
     Route: 065
     Dates: start: 201903
  8. KAM-BAKU-TAISO-TO [Concomitant]
     Dosage: UNK
     Route: 065
     Dates: start: 201605

REACTIONS (5)
  - Decreased appetite [Recovering/Resolving]
  - Diarrhoea [Recovering/Resolving]
  - Conjunctivitis [Unknown]
  - Renal impairment [Unknown]
  - Pyrexia [Recovering/Resolving]

NARRATIVE: CASE EVENT DATE: 201907
